FAERS Safety Report 6608847-8 (Version None)
Quarter: 2010Q1

REPORT INFORMATION
  Report Type: 
  Country: None (occurrence: None)
  Receive Date: 20100301
  Receipt Date: 20100217
  Transmission Date: 20100710
  Serious: Yes (Hospitalization, Other)
  Sender: FDA-Public Use
  Company Number: SK-PFIZER INC-2010012848

PATIENT
  Age: 25 Year
  Sex: Male
  Weight: 67 kg

DRUGS (2)
  1. ANIDULAFUNGIN [Suspect]
     Indication: SYSTEMIC CANDIDA
     Dosage: 200 ML, 1X/DAY
     Route: 042
     Dates: start: 20100115, end: 20100115
  2. ANIDULAFUNGIN [Suspect]
     Dosage: 100 ML, 1X/DAY
     Route: 042
     Dates: start: 20100116, end: 20100207

REACTIONS (2)
  - ILEUS [None]
  - INFUSION RELATED REACTION [None]
